FAERS Safety Report 23715529 (Version 5)
Quarter: 2025Q4

REPORT INFORMATION
  Report Type: Report from Study
  Country: US (occurrence: US)
  Receive Date: 20240407
  Receipt Date: 20251030
  Transmission Date: 20260118
  Serious: Yes (Hospitalization, Other)
  Sender: ABBVIE
  Company Number: US-ABBVIE-5706301

PATIENT
  Age: 39 Year
  Sex: Female
  Weight: 88.45 kg

DRUGS (7)
  1. SKYRIZI [Suspect]
     Active Substance: RISANKIZUMAB-RZAA
     Indication: Crohn^s disease
     Dosage: DOSE FORM: SOLUTION FOR INJECTION IN PRE-FILLED INJECTOR, DOSE INCREASED, FORM STRENGTH: 360 MILL...
     Route: 058
     Dates: start: 20230705, end: 20250522
  2. SKYRIZI [Suspect]
     Active Substance: RISANKIZUMAB-RZAA
     Dosage: DOSE FORM: SOLUTION FOR INJECTION IN PRE-FILLED INJECTOR, FORM STRENGTH: 360 MILLIGRAM
     Route: 058
     Dates: start: 20250523
  3. ZOLOFT [Concomitant]
     Active Substance: SERTRALINE HYDROCHLORIDE
     Indication: Anxiety
  4. SKYRIZI [Suspect]
     Active Substance: RISANKIZUMAB-RZAA
     Indication: Crohn^s disease
     Dosage: FORM STRENGTH: 600 MILLIGRAM, ONE EVERY MONTH?DOSE FORM: INTRAVENOUS INFUSION
     Route: 042
     Dates: start: 202309, end: 202310
  5. SKYRIZI [Suspect]
     Active Substance: RISANKIZUMAB-RZAA
     Indication: Crohn^s disease
     Dosage: FORM STRENGTH: 600 MILLIGRAM, ?DOSE FORM: INTRAVENOUS INFUSION
     Route: 042
     Dates: start: 202312, end: 202401
  6. SKYRIZI [Suspect]
     Active Substance: RISANKIZUMAB-RZAA
     Indication: Crohn^s disease
     Dosage: DOSE FORM: SOLUTION FOR INJECTION
     Route: 042
     Dates: start: 202304, end: 202306
  7. PROGESTERONE [Concomitant]
     Active Substance: PROGESTERONE
     Indication: Menstruation irregular

REACTIONS (17)
  - Nephrolithiasis [Recovered/Resolved]
  - Rash pruritic [Recovered/Resolved]
  - Therapeutic product effect incomplete [Not Recovered/Not Resolved]
  - Product storage error [Not Recovered/Not Resolved]
  - Frequent bowel movements [Not Recovered/Not Resolved]
  - Crohn^s disease [Not Recovered/Not Resolved]
  - Skin disorder [Recovered/Resolved]
  - Cholelithiasis [Recovered/Resolved]
  - Polymenorrhoea [Not Recovered/Not Resolved]
  - Neurodermatitis [Not Recovered/Not Resolved]
  - Fibrous histiocytoma [Not Recovered/Not Resolved]
  - Nephrolithiasis [Unknown]
  - Cholelithiasis [Recovered/Resolved]
  - Vitamin D decreased [Recovering/Resolving]
  - Rash papular [Recovered/Resolved]
  - Skin discharge [Recovered/Resolved]
  - Product storage error [Recovered/Resolved]

NARRATIVE: CASE EVENT DATE: 20230101
